FAERS Safety Report 14683964 (Version 1)
Quarter: 2018Q1

REPORT INFORMATION
  Report Type: Spontaneous
  Country: US (occurrence: US)
  Receive Date: 20180327
  Receipt Date: 20180327
  Transmission Date: 20180509
  Serious: Yes (Hospitalization, Other)
  Sender: FDA-Public Use
  Company Number: US-ELI_LILLY_AND_COMPANY-US201803007577

PATIENT
  Sex: Male

DRUGS (3)
  1. HUMALOG [Suspect]
     Active Substance: INSULIN LISPRO
     Indication: TYPE 2 DIABETES MELLITUS
     Dosage: 15-25 U, PRN, 2-3 TIMES PER DAY
     Route: 058
     Dates: start: 2016
  2. LACTULOSE. [Concomitant]
     Active Substance: LACTULOSE
     Indication: PRODUCT USED FOR UNKNOWN INDICATION
     Dosage: UNK, UNKNOWN
  3. HUMALOG [Suspect]
     Active Substance: INSULIN LISPRO
     Dosage: 15-25 U, PRN, 2-3 TIMES PER DAY
     Route: 058

REACTIONS (6)
  - Coma [Recovered/Resolved]
  - Hepatic cirrhosis [Not Recovered/Not Resolved]
  - Gastric varices [Unknown]
  - Somnolence [Not Recovered/Not Resolved]
  - Gastric haemorrhage [Unknown]
  - Non-alcoholic fatty liver [Not Recovered/Not Resolved]
